FAERS Safety Report 7573348-X (Version None)
Quarter: 2011Q2

REPORT INFORMATION
  Report Type: 
  Country: None (occurrence: None)
  Receive Date: 20110627
  Receipt Date: 20110624
  Transmission Date: 20111010
  Serious: Yes (Death)
  Sender: FDA-Public Use
  Company Number: PHFR2011GB02639

PATIENT
  Sex: Male

DRUGS (4)
  1. VENLAFAXINE [Concomitant]
     Dosage: 150 MG DAILY
     Route: 048
  2. CLOZAPINE [Suspect]
     Indication: SCHIZOPHRENIA
     Dosage: 650 MG DAILY
     Dates: start: 20090318
  3. OXYBUTYNIN [Concomitant]
     Dosage: 2.5 MG DAILY
     Route: 048
  4. LITHIUM CARBONATE [Concomitant]
     Dosage: 400 MG DAILY
     Route: 048

REACTIONS (6)
  - MALAISE [None]
  - DIARRHOEA [None]
  - VOMITING [None]
  - INTESTINAL OBSTRUCTION [None]
  - DIZZINESS [None]
  - DIVERTICULITIS [None]
